FAERS Safety Report 19463908 (Version 1)
Quarter: 2021Q2

REPORT INFORMATION
  Report Type: Spontaneous
  Country: US (occurrence: US)
  Receive Date: 20210625
  Receipt Date: 20210625
  Transmission Date: 20210717
  Serious: No
  Sender: FDA-Public Use
  Company Number: US-SA-2021SA207472

PATIENT
  Sex: Female

DRUGS (1)
  1. DUPIXENT [Suspect]
     Active Substance: DUPILUMAB
     Dosage: 300 MG, QOW
     Route: 058
     Dates: start: 202012

REACTIONS (6)
  - Eczema [Unknown]
  - Abdominal pain [Unknown]
  - Diarrhoea [Unknown]
  - Oral herpes [Unknown]
  - Skin exfoliation [Unknown]
  - Urticaria [Unknown]
